FAERS Safety Report 24001787 (Version 1)
Quarter: 2024Q2

REPORT INFORMATION
  Report Type: Report from Study
  Country: US (occurrence: US)
  Receive Date: 20240622
  Receipt Date: 20240622
  Transmission Date: 20240717
  Serious: No
  Sender: FDA-Public Use
  Company Number: US-ALXN-202406USA000915US

PATIENT
  Age: 67 Year
  Sex: Female

DRUGS (1)
  1. STRENSIQ [Suspect]
     Active Substance: ASFOTASE ALFA
     Indication: Product used for unknown indication
     Dosage: UNK
     Route: 065
     Dates: start: 20240610

REACTIONS (4)
  - Product use issue [Unknown]
  - Needle issue [Unknown]
  - Tremor [Unknown]
  - Anxiety [Unknown]

NARRATIVE: CASE EVENT DATE: 20240612
